FAERS Safety Report 21048782 (Version 1)
Quarter: 2022Q3

REPORT INFORMATION
  Report Type: Other
  Country: LU (occurrence: LU)
  Receive Date: 20220706
  Receipt Date: 20220706
  Transmission Date: 20221026
  Serious: Yes (Life-Threatening, Hospitalization, Disabling, Other)
  Sender: FDA-Public Use
  Company Number: LU-DENTSPLY-2022SCDP000175

PATIENT
  Age: 27 Year
  Sex: Female
  Weight: 144 kg

DRUGS (6)
  1. XYLOCAINE [Suspect]
     Active Substance: LIDOCAINE HYDROCHLORIDE
     Indication: Anaesthesia
     Dosage: 0.0165 MG/KG/MINUTE 2 % XYLOCAINE
     Dates: start: 20220603, end: 20220603
  2. KETAMINE [Suspect]
     Active Substance: KETAMINE
     Indication: Anaesthesia
     Dosage: UNK
     Dates: start: 20220603, end: 20220603
  3. ROCURONIUM BROMIDE [Suspect]
     Active Substance: ROCURONIUM BROMIDE
     Indication: General anaesthesia
     Dosage: 100 MILLIGRAM TOTAL
     Dates: start: 20220603, end: 20220603
  4. PROPOFOL [Suspect]
     Active Substance: PROPOFOL
     Indication: General anaesthesia
     Dosage: 280 MILLIGRAM TOTAL
     Dates: start: 20220603, end: 20220603
  5. SUFENTA [Concomitant]
     Active Substance: SUFENTANIL CITRATE
     Indication: General anaesthesia
     Dosage: 10 MICROGRAM TOTAL
     Dates: start: 20220603, end: 20220603
  6. ALBUTEROL SULFATE [Concomitant]
     Active Substance: ALBUTEROL SULFATE
     Indication: Product used for unknown indication
     Dosage: UNK

REACTIONS (3)
  - Anaphylactic shock [None]
  - Multiple organ dysfunction syndrome [None]
  - Cardio-respiratory arrest [None]

NARRATIVE: CASE EVENT DATE: 20220603
